FAERS Safety Report 4960069-2 (Version None)
Quarter: 2006Q1

REPORT INFORMATION
  Report Type: 
  Country: None (occurrence: None)
  Receive Date: 20060331
  Receipt Date: 20051123
  Transmission Date: 20060701
  Serious: Yes (Hospitalization)
  Sender: FDA-Public Use
  Company Number: US-MERCK-0511USA04032

PATIENT
  Age: 75 Year
  Sex: Female
  Weight: 77 kg

DRUGS (8)
  1. VIOXX [Suspect]
     Indication: OSTEOARTHRITIS
     Route: 048
     Dates: start: 20020601, end: 20040201
  2. MACROBID [Concomitant]
     Indication: INFECTION
     Route: 065
  3. TOPROL-XL [Concomitant]
     Indication: HYPERTENSION
     Route: 065
     Dates: start: 19890101
  4. PHENAZOPYRIDINE HYDROCHLORIDE [Concomitant]
     Route: 065
  5. DIFLUCAN [Concomitant]
     Route: 065
  6. AMOXICILLIN [Concomitant]
     Indication: INFECTION
     Route: 065
  7. IBUPROFEN [Concomitant]
     Indication: OSTEOARTHRITIS
     Route: 065
     Dates: start: 20040101, end: 20040401
  8. HYDROCODONE BITARTRATE [Concomitant]
     Indication: OSTEOARTHRITIS
     Route: 065
     Dates: start: 20030201, end: 20030301

REACTIONS (14)
  - ABDOMINAL PAIN [None]
  - ARTHROPATHY [None]
  - ATRIOVENTRICULAR BLOCK [None]
  - BLADDER CANCER [None]
  - BLOOD CHOLESTEROL INCREASED [None]
  - CORONARY ARTERY DISEASE [None]
  - DEPRESSION [None]
  - DYSPNOEA [None]
  - DYSPNOEA EXERTIONAL [None]
  - EMOTIONAL DISTRESS [None]
  - FATIGUE [None]
  - HYPERTENSION [None]
  - MYOCARDIAL INFARCTION [None]
  - PLATELET AGGREGATION INCREASED [None]
